FAERS Safety Report 18152847 (Version 1)
Quarter: 2020Q3

REPORT INFORMATION
  Report Type: Spontaneous
  Country: US (occurrence: US)
  Receive Date: 20200814
  Receipt Date: 20200814
  Transmission Date: 20201103
  Serious: No
  Sender: FDA-Public Use
  Company Number: US-MANNKIND CORPORATION-2020MK000040

PATIENT
  Age: 63 Year
  Sex: Female

DRUGS (2)
  1. AFREZZA [Suspect]
     Active Substance: INSULIN HUMAN
     Indication: PRODUCT USED FOR UNKNOWN INDICATION
     Dates: start: 20200422
  2. AFREZZA [Suspect]
     Active Substance: INSULIN HUMAN
     Dates: start: 20200422, end: 20200514

REACTIONS (1)
  - Headache [Unknown]
